FAERS Safety Report 8217335-7 (Version None)
Quarter: 2012Q1

REPORT INFORMATION
  Report Type: 
  Country: None (occurrence: None)
  Receive Date: 20120313
  Receipt Date: 20120308
  Transmission Date: 20120608
  Serious: Yes (Disabling)
  Sender: FDA-Public Use
  Company Number: 2012-000068

PATIENT
  Age: 61 Year
  Sex: Female

DRUGS (3)
  1. VITAMINS NOS [Concomitant]
  2. CALCIUM CARBONATE [Concomitant]
  3. ATELVIA [Suspect]
     Indication: OSTEOPOROSIS
     Dosage: 35 MG, ONCE WEEKLY, ORAL
     Route: 048
     Dates: start: 20110401, end: 20111101

REACTIONS (1)
  - BALANCE DISORDER [None]
